FAERS Safety Report 8621539-9 (Version None)
Quarter: 2012Q3

REPORT INFORMATION
  Report Type: 
  Country: None (occurrence: None)
  Receive Date: 20120824
  Receipt Date: 20120820
  Transmission Date: 20120928
  Serious: Yes (Other)
  Sender: FDA-Public Use
  Company Number: US-009507513-1208USA008390

PATIENT

DRUGS (1)
  1. JANUVIA [Suspect]
     Dosage: UNK DF, UNK
     Route: 048

REACTIONS (3)
  - WEIGHT DECREASED [None]
  - PANCREATITIS [None]
  - SWELLING [None]
